FAERS Safety Report 9252891 (Version 1)
Quarter: 2013Q2

REPORT INFORMATION
  Report Type: Spontaneous
  Country: US (occurrence: US)
  Receive Date: 20130424
  Receipt Date: 20130424
  Transmission Date: 20140414
  Serious: No
  Sender: FDA-Public Use
  Company Number: US-ASTRAZENECA-2013SE23168

PATIENT
  Age: 54 Year
  Sex: Female
  Weight: 72.6 kg

DRUGS (2)
  1. FASLODEX [Suspect]
     Indication: BREAST CANCER METASTATIC
     Route: 030
  2. CRESTOR [Suspect]
     Indication: HYPERCHOLESTEROLAEMIA
     Route: 048

REACTIONS (7)
  - Bone pain [Recovering/Resolving]
  - Pain in extremity [Recovering/Resolving]
  - Fatigue [Unknown]
  - Injection site scab [Not Recovered/Not Resolved]
  - Injection site pain [Not Recovered/Not Resolved]
  - Injection site haemorrhage [Unknown]
  - Injection site pain [Unknown]
